FAERS Safety Report 13493413 (Version 1)
Quarter: 2017Q2

REPORT INFORMATION
  Report Type: Spontaneous
  Country: US (occurrence: US)
  Receive Date: 20170427
  Receipt Date: 20170427
  Transmission Date: 20170830
  Serious: No
  Sender: FDA-Public Use
  Company Number: US-ROCHE-1524428

PATIENT
  Sex: Male

DRUGS (2)
  1. ERIVEDGE [Suspect]
     Active Substance: VISMODEGIB
     Indication: NEOPLASM MALIGNANT
     Dosage: THERAPY STOPPED BECAUSE THE PATIENT WAS STARTED ON ANOTHER CHEMOTHERAPY.
     Route: 065
  2. ERIVEDGE [Suspect]
     Active Substance: VISMODEGIB
     Dosage: THERAPY RESTARTED ON AN UNSPECIFIED DATE.
     Route: 065

REACTIONS (1)
  - Macule [Unknown]
